FAERS Safety Report 6878657-5 (Version None)
Quarter: 2010Q3

REPORT INFORMATION
  Report Type: 
  Country: None (occurrence: None)
  Receive Date: 20100728
  Receipt Date: 20100726
  Transmission Date: 20110219
  Serious: Yes (Congenital Anomaly)
  Sender: FDA-Public Use
  Company Number: A0872412A

PATIENT
  Sex: Male

DRUGS (7)
  1. COMBIVIR [Suspect]
     Indication: HIV INFECTION
     Dates: start: 20040810, end: 20060221
  2. KALETRA [Suspect]
     Indication: HIV INFECTION
     Dates: start: 20060202, end: 20060221
  3. NEVIRAPINE [Suspect]
     Indication: HIV INFECTION
     Dates: start: 20040810, end: 20060201
  4. VIREAD [Suspect]
     Indication: HIV INFECTION
     Dates: start: 20060202, end: 20060221
  5. FERROUS SULFATE TAB [Concomitant]
  6. MULTI-VITAMINS [Concomitant]
  7. TOBACCO [Concomitant]

REACTIONS (2)
  - DRUG EXPOSURE DURING PREGNANCY [None]
  - TALIPES [None]
